FAERS Safety Report 6891076-0 (Version None)
Quarter: 2010Q3

REPORT INFORMATION
  Report Type: 
  Country: None (occurrence: None)
  Receive Date: 20100731
  Receipt Date: 20090527
  Transmission Date: 20110219
  Serious: No
  Sender: FDA-Public Use
  Company Number: US-PFIZER INC-2009219809

PATIENT
  Sex: Male
  Weight: 79.4 kg

DRUGS (6)
  1. LIPITOR [Suspect]
     Dosage: UNK
     Dates: end: 20081001
  2. NIASPAN [Suspect]
     Indication: BLOOD CHOLESTEROL INCREASED
     Dosage: 2000 MG, 1X/DAY
     Route: 048
     Dates: start: 20080401
  3. TRICOR [Suspect]
     Dosage: UNK
     Dates: end: 20081001
  4. ZOCOR [Suspect]
     Dosage: UNK
     Dates: end: 20081001
  5. OLMESARTAN MEDOXOMIL [Concomitant]
     Dosage: 1/2 TAB DAILY
  6. NEXIUM [Concomitant]
     Dosage: UNK

REACTIONS (5)
  - BLOOD GLUCOSE INCREASED [None]
  - FLUSHING [None]
  - HEPATIC ENZYME INCREASED [None]
  - MUSCLE SPASMS [None]
  - RESTLESS LEGS SYNDROME [None]
